FAERS Safety Report 7590425-8 (Version None)
Quarter: 2011Q2

REPORT INFORMATION
  Report Type: 
  Country: None (occurrence: None)
  Receive Date: 20110627
  Receipt Date: 20110616
  Transmission Date: 20111010
  Serious: Yes (Death, Hospitalization)
  Sender: FDA-Public Use
  Company Number: 1000021701

PATIENT
  Age: 72 Year
  Sex: Female

DRUGS (6)
  1. HALDOL [Suspect]
     Dosage: 0.05 DOSAGE FORMS (0.05 DOSAGE FORMS, 1 IN 1 D), ORAL
     Route: 048
     Dates: start: 20110427, end: 20110505
  2. NOCTAMIDE (LORMETAZEPAM) (TABLETS) [Suspect]
     Dosage: 2 MG (2 MG, 1 IN 1 D), ORAL
     Route: 048
     Dates: start: 20110427, end: 20110509
  3. AUGMENTIN [Suspect]
     Dosage: 1 DOSAGE FORM (1, 1 IN 1 D), INTRAVENOUS (NOT OTHERWISE SPECIFIED)
     Route: 042
     Dates: start: 20110427, end: 20110505
  4. MEMANTINE HYDROCHLORIDE [Suspect]
     Indication: DEMENTIA ALZHEIMER'S TYPE
     Dosage: 20 MG (20 MG, 1 IN 1 D), ORAL
     Route: 048
     Dates: start: 20110427, end: 20110505
  5. PERMIXON (SERENOA REPENS) [Suspect]
     Dosage: 1 DOSAGE FORM (1 DOSAGE FORMS, 1 IN 1 D), ORAL
     Route: 048
     Dates: start: 20110427, end: 20110507
  6. XYZAL [Suspect]
     Dosage: 3 DOSAGE FORM (3 DOSAGE FORMS, 1 IN 1 D), ORAL
     Route: 048
     Dates: start: 20110501, end: 20110505

REACTIONS (2)
  - GENERAL PHYSICAL HEALTH DETERIORATION [None]
  - PANCYTOPENIA [None]
